FAERS Safety Report 5963261-3 (Version None)
Quarter: 2008Q4

REPORT INFORMATION
  Report Type: 
  Country: None (occurrence: None)
  Receive Date: 20081124
  Receipt Date: 20081117
  Transmission Date: 20090506
  Serious: Yes (Other)
  Sender: FDA-Public Use
  Company Number: US-ASTRAZENECA-2008UW25756

PATIENT
  Age: 50 Year
  Sex: Female
  Weight: 59 kg

DRUGS (8)
  1. CRESTOR [Suspect]
     Indication: BLOOD CHOLESTEROL INCREASED
     Route: 048
     Dates: start: 20081107, end: 20081116
  2. THYROID TAB [Concomitant]
     Dosage: 60 MG, 1 GRAIN
  3. VITAMIN B6 [Concomitant]
  4. ASCORBIC ACID [Concomitant]
  5. FLAX SEED [Concomitant]
  6. KRILL OIL [Concomitant]
  7. PROGESTERONE [Concomitant]
  8. ESTRADIOL [Concomitant]

REACTIONS (10)
  - ARTHRALGIA [None]
  - ASTHENIA [None]
  - FLUID RETENTION [None]
  - LIVER DISORDER [None]
  - MYALGIA [None]
  - NASOPHARYNGITIS [None]
  - OEDEMA PERIPHERAL [None]
  - THYROID DISORDER [None]
  - WEIGHT INCREASED [None]
  - WHITE BLOOD CELL COUNT DECREASED [None]
